FAERS Safety Report 17144255 (Version 2)
Quarter: 2019Q4

REPORT INFORMATION
  Report Type: Spontaneous
  Country: DE (occurrence: DE)
  Receive Date: 20191211
  Receipt Date: 20191218
  Transmission Date: 20200122
  Serious: Yes (Other)
  Sender: FDA-Public Use
  Company Number: DE-BAXTER-2019BAX025029

PATIENT

DRUGS (1)
  1. PHOXILIUM [Suspect]
     Active Substance: CALCIUM CL\MAGNESIUM CL\POTASSIUM CL\SODIUM BICAR\SODIUM CL\SODIUM PHOSPHATE,DIB
     Indication: HAEMODIALYSIS
     Route: 010
     Dates: end: 201912

REACTIONS (1)
  - Haemorrhage [Unknown]

NARRATIVE: CASE EVENT DATE: 201912
